FAERS Safety Report 5626619-8 (Version None)
Quarter: 2008Q1

REPORT INFORMATION
  Report Type: 
  Country: None (occurrence: None)
  Receive Date: 20080214
  Receipt Date: 20080204
  Transmission Date: 20080703
  Serious: Yes (Other)
  Sender: FDA-Public Use
  Company Number: US-SANOFI-SYNTHELABO-A03200800175

PATIENT
  Sex: Female
  Weight: 79.4 kg

DRUGS (5)
  1. AMBIEN CR [Suspect]
     Indication: INSOMNIA
     Route: 048
     Dates: start: 20070301, end: 20070701
  2. LIPITOR [Concomitant]
     Indication: DRUG USE FOR UNKNOWN INDICATION
     Dosage: UNK
     Route: 065
  3. SYNTHROID [Concomitant]
     Indication: DRUG USE FOR UNKNOWN INDICATION
     Dosage: UNK
     Route: 065
  4. NEXIUM [Concomitant]
     Indication: DRUG USE FOR UNKNOWN INDICATION
     Dosage: UNK
     Route: 065
  5. HORMONE REPLACEMENT THERAPY [Concomitant]
     Indication: MENOPAUSE
     Dosage: UNK
     Route: 065

REACTIONS (5)
  - ARTHRALGIA [None]
  - CONTUSION [None]
  - FALL [None]
  - HAND FRACTURE [None]
  - SOMNAMBULISM [None]
